FAERS Safety Report 8778899 (Version 1)
Quarter: 2012Q4

REPORT INFORMATION
  Report Type: 
  Country: FR (occurrence: FR)
  Receive Date: 20120907
  Receipt Date: 20120907
  Transmission Date: 20130627
  Serious: Yes (Congenital Anomaly, Other)
  Sender: FDA-Public Use
  Company Number: FR-ELI_LILLY_AND_COMPANY-FR201209000139

PATIENT
  Sex: Female

DRUGS (3)
  1. PROZAC [Suspect]
     Indication: POSTPARTUM DEPRESSION
     Dosage: 1 DF, qd
     Route: 064
     Dates: start: 20110130, end: 20110916
  2. DEPAKINE [Concomitant]
     Indication: EPILEPSY
     Dosage: 500 mg, bid
     Route: 064
  3. EFFEXOR [Concomitant]
     Indication: POSTPARTUM DEPRESSION
     Dosage: UNK
     Route: 064
     Dates: start: 2001, end: 20110130

REACTIONS (3)
  - Cardiac aneurysm [Recovered/Resolved]
  - Polydactyly [Recovered/Resolved]
  - Foetal exposure during pregnancy [Recovered/Resolved]
